FAERS Safety Report 6652072-1 (Version None)
Quarter: 2010Q1

REPORT INFORMATION
  Report Type: 
  Country: None (occurrence: None)
  Receive Date: 20100325
  Receipt Date: 20100322
  Transmission Date: 20100710
  Serious: Yes (Death)
  Sender: FDA-Public Use
  Company Number: US-WATSON-2010-03500

PATIENT
  Age: 41 Year
  Sex: Female

DRUGS (8)
  1. HYDROXYZINE HCL [Suspect]
     Indication: DRUG USE FOR UNKNOWN INDICATION
  2. CLONAZEPAM [Suspect]
     Indication: DRUG USE FOR UNKNOWN INDICATION
  3. ZOLPIDEM TARTRATE [Suspect]
     Indication: DRUG USE FOR UNKNOWN INDICATION
  4. ACETAMINOPHEN/DIPHENHYDRAMINE [Suspect]
     Indication: DRUG USE FOR UNKNOWN INDICATION
  5. OXYMORPHONE [Suspect]
     Indication: DRUG USE FOR UNKNOWN INDICATION
  6. VENLAFAXINE [Suspect]
     Indication: DRUG USE FOR UNKNOWN INDICATION
  7. SALICYLATES NOS [Suspect]
     Indication: DRUG USE FOR UNKNOWN INDICATION
  8. QUETIAPINE [Suspect]
     Indication: DRUG USE FOR UNKNOWN INDICATION

REACTIONS (1)
  - DEATH [None]
